FAERS Safety Report 14384532 (Version 3)
Quarter: 2018Q2

REPORT INFORMATION
  Report Type: Spontaneous
  Country: FR (occurrence: FR)
  Receive Date: 20180115
  Receipt Date: 20180417
  Transmission Date: 20180711
  Serious: Yes (Death)
  Sender: FDA-Public Use
  Company Number: FR-MYLANLABS-2018M1002889

PATIENT
  Sex: Male

DRUGS (11)
  1. METHOTREXATE. [Suspect]
     Active Substance: METHOTREXATE
     Indication: OSTEOSARCOMA
     Dosage: 12000 MG/M2, QD
  2. DOXORUBICIN [Suspect]
     Active Substance: DOXORUBICIN
     Indication: OSTEOSARCOMA
     Dosage: 37.5 MG/M2, UNK
  3. ETOPOSIDE. [Suspect]
     Active Substance: ETOPOSIDE
     Indication: OSTEOSARCOMA
     Dosage: 75 MG/M2, QD
  4. MESNA. [Suspect]
     Active Substance: MESNA
     Indication: OSTEOSARCOMA
     Dosage: 3600 MG/M2, QD
  5. IFOSFAMIDE. [Suspect]
     Active Substance: IFOSFAMIDE
     Indication: OSTEOSARCOMA
     Dosage: 3000 MG/M2, QD
  6. CARBOPLATIN. [Suspect]
     Active Substance: CARBOPLATIN
     Indication: OSTEOSARCOMA
     Dosage: UNK
  7. FOLINIC ACID [Suspect]
     Active Substance: LEUCOVORIN
     Dosage: 15 MG, UNK
  8. CISPLATIN. [Suspect]
     Active Substance: CISPLATIN
     Indication: OSTEOSARCOMA
     Dosage: 120 MG/M2, QD
  9. CYCLOPHOSPHAMIDE. [Suspect]
     Active Substance: CYCLOPHOSPHAMIDE
     Indication: OSTEOSARCOMA
     Dosage: UNK
  10. FOLINIC ACID [Suspect]
     Active Substance: LEUCOVORIN
     Indication: OSTEOSARCOMA
     Dosage: 15 MG, UNK
  11. ZOLEDRONIC ACID [Suspect]
     Active Substance: ZOLEDRONIC ACID
     Indication: OSTEOSARCOMA
     Dosage: 10 DF, MONTHLY

REACTIONS (1)
  - Toxicity to various agents [Fatal]
